FAERS Safety Report 18642638 (Version 1)
Quarter: 2020Q4

REPORT INFORMATION
  Report Type: Report from Study
  Country: GB (occurrence: GB)
  Receive Date: 20201221
  Receipt Date: 20201221
  Transmission Date: 20210114
  Serious: Yes (Hospitalization)
  Sender: FDA-Public Use
  Company Number: GB-JNJFOC-20201236271

PATIENT
  Age: 8 Decade
  Sex: Female

DRUGS (10)
  1. METHOTREXATE. [Concomitant]
     Active Substance: METHOTREXATE
  2. CETRIZINE [Concomitant]
     Active Substance: CETIRIZINE HYDROCHLORIDE
  3. ASPIRINE [Concomitant]
     Active Substance: ASPIRIN
  4. COCODAMOL [Concomitant]
     Active Substance: ACETAMINOPHEN\CODEINE PHOSPHATE
  5. CARBAMAZEPINE. [Concomitant]
     Active Substance: CARBAMAZEPINE
  6. STELARA [Suspect]
     Active Substance: USTEKINUMAB
     Indication: PSORIASIS
     Route: 058
     Dates: start: 2014
  7. STELARA [Suspect]
     Active Substance: USTEKINUMAB
  8. LANSOPRAZOLE. [Concomitant]
     Active Substance: LANSOPRAZOLE
  9. ATORVASTATIN [Concomitant]
     Active Substance: ATORVASTATIN
  10. TEGRETOL [Concomitant]
     Active Substance: CARBAMAZEPINE

REACTIONS (1)
  - COVID-19 [Unknown]

NARRATIVE: CASE EVENT DATE: 2020
